FAERS Safety Report 8713823 (Version 2)
Quarter: 2012Q4

REPORT INFORMATION
  Report Type: 
  Country: US (occurrence: US)
  Receive Date: 20120808
  Receipt Date: 20120927
  Transmission Date: 20130627
  Serious: Yes (Hospitalization)
  Sender: FDA-Public Use
  Company Number: US-GILEAD-2012-0059246

PATIENT
  Age: 56 Year
  Sex: Female

DRUGS (1)
  1. LETAIRIS [Suspect]
     Indication: PRODUCT USED FOR UNKNOWN INDICATION
     Dosage: 10 mg, UNK
     Route: 048
     Dates: start: 20090114

REACTIONS (3)
  - Hypoaesthesia [Recovered/Resolved]
  - Hypoaesthesia oral [Recovered/Resolved]
  - Migraine [Recovered/Resolved]
